FAERS Safety Report 25728067 (Version 1)
Quarter: 2025Q3

REPORT INFORMATION
  Report Type: Spontaneous
  Country: US (occurrence: None)
  Receive Date: 20250826
  Receipt Date: 20250826
  Transmission Date: 20251021
  Serious: Yes (unspecified)
  Sender: FDA-CTU
  Company Number: None

PATIENT
  Age: 55 Year
  Sex: Female
  Weight: 65.77 kg

DRUGS (7)
  1. GABAPENTIN [Suspect]
     Active Substance: GABAPENTIN
     Dosage: FREQUENCY : 3 TIMES A DAY;?
     Route: 048
     Dates: start: 20250729, end: 20250821
  2. VITAMIN B COMPLEX [Concomitant]
     Active Substance: CYANOCOBALAMIN\DEXPANTHENOL\NIACINAMIDE\PYRIDOXINE HYDROCHLORIDE\RIBOFLAVIN 5^-PHOSPHATE SODIUM\THIA
  3. MAGNESIUM [Concomitant]
     Active Substance: MAGNESIUM
  4. D3K2 [Concomitant]
  5. ESTRADIOL [Concomitant]
     Active Substance: ESTRADIOL
  6. PROGESTERONE [Concomitant]
     Active Substance: PROGESTERONE
  7. ADVIL [Concomitant]
     Active Substance: IBUPROFEN

REACTIONS (8)
  - Drug ineffective [None]
  - Dizziness [None]
  - Hypotension [None]
  - Dizziness [None]
  - Therapy change [None]
  - Nausea [None]
  - Abdominal pain upper [None]
  - Pancreatitis [None]

NARRATIVE: CASE EVENT DATE: 20250807
